FAERS Safety Report 10652161 (Version 1)
Quarter: 2014Q4

REPORT INFORMATION
  Report Type: Spontaneous
  Country: US (occurrence: None)
  Receive Date: 20141211
  Receipt Date: 20141211
  Transmission Date: 20150529
  Serious: Yes (Life-Threatening)
  Sender: FDA-Public Use
  Company Number: 2014JUB00205

PATIENT
  Age: 45 Year
  Sex: Female

DRUGS (5)
  1. FENTANYL (FENTANYL) [Concomitant]
     Active Substance: FENTANYL
  2. PROPOFOL (PROPOFOL) [Concomitant]
     Active Substance: PROPOFOL
  3. METHYLPREDNISOLONE (METHYLPREDNISOLONE) [Suspect]
     Active Substance: METHYLPREDNISOLONE
     Indication: SURGERY
     Route: 042
  4. LIDOCAINE (LIDOCAINE) [Concomitant]
     Active Substance: LIDOCAINE
  5. ROCURONIUM (ROCURONIUM) [Concomitant]
     Active Substance: ROCURONIUM BROMIDE

REACTIONS (2)
  - Cardiac arrest [None]
  - Anaphylactic reaction [None]
